FAERS Safety Report 8244733-8 (Version None)
Quarter: 2012Q1

REPORT INFORMATION
  Report Type: 
  Country: None (occurrence: None)
  Receive Date: 20120329
  Receipt Date: 20110301
  Transmission Date: 20120608
  Serious: No
  Sender: FDA-Public Use
  Company Number: US-MYLANLABS-2011S1004274

PATIENT
  Age: 52 Year
  Sex: Male

DRUGS (6)
  1. FENTANYL-100 [Suspect]
     Indication: BACK PAIN
     Dosage: CHANGED Q72H
     Route: 062
     Dates: start: 20110201
  2. LYRICA [Concomitant]
     Indication: NEUROPATHY PERIPHERAL
  3. FENTANYL-100 [Suspect]
     Dosage: CHANGED Q72H
     Route: 062
     Dates: start: 20110201
  4. FENTANYL-100 [Suspect]
     Indication: PAIN IN EXTREMITY
     Dosage: CHANGED Q72H
     Route: 062
     Dates: start: 20110201
  5. FENTANYL-100 [Suspect]
     Dosage: CHANGED Q72H
     Route: 062
     Dates: start: 20110201
  6. OXYCODONE HCL [Concomitant]
     Indication: PAIN

REACTIONS (4)
  - PAIN IN EXTREMITY [None]
  - DRUG EFFECT DECREASED [None]
  - BACK PAIN [None]
  - DRUG WITHDRAWAL SYNDROME [None]
